FAERS Safety Report 5340092-9 (Version None)
Quarter: 2007Q2

REPORT INFORMATION
  Report Type: 
  Country: None (occurrence: None)
  Receive Date: 20070529
  Receipt Date: 20070522
  Transmission Date: 20071010
  Serious: Yes (Hospitalization)
  Sender: FDA-Public Use
  Company Number: 2007SP010029

PATIENT
  Age: 59 Year
  Sex: Female
  Weight: 40 kg

DRUGS (13)
  1. PEG-INTRON [Suspect]
     Indication: HEPATITIS C
     Dosage: SEE IMAGE; SC
     Route: 058
     Dates: start: 20060718, end: 20060901
  2. PEG-INTRON [Suspect]
     Indication: HEPATITIS C
     Dosage: SEE IMAGE; SC
     Route: 058
     Dates: start: 20060926, end: 20060926
  3. PEG-INTRON [Suspect]
     Indication: HEPATITIS C
     Dosage: SEE IMAGE; SC
     Route: 058
     Dates: start: 20061001, end: 20070220
  4. REBETOL [Suspect]
     Indication: HEPATITIS C
     Dosage: 600 MG;QD;PO
     Route: 048
     Dates: start: 20060718, end: 20070225
  5. JUZEN-TAIHO-TO [Concomitant]
  6. ALESION [Concomitant]
  7. GLAKAY [Concomitant]
  8. URSO 250 [Concomitant]
  9. MOBIC [Concomitant]
  10. OMEPRAL [Concomitant]
  11. RIMATIL [Concomitant]
  12. FLOMOX [Concomitant]
  13. DASEN [Concomitant]

REACTIONS (4)
  - FACE OEDEMA [None]
  - RASH GENERALISED [None]
  - SALIVARY GLAND PAIN [None]
  - SJOGREN'S SYNDROME [None]
